FAERS Safety Report 4383341-6 (Version None)
Quarter: 2004Q2

REPORT INFORMATION
  Report Type: 
  Country: None (occurrence: None)
  Receive Date: 20040622
  Receipt Date: 20040617
  Transmission Date: 20050107
  Serious: Yes (Other)
  Sender: FDA-Public Use
  Company Number: HYDM20040006

PATIENT
  Age: 81 Year
  Sex: Female

DRUGS (6)
  1. HYDROMORPHONE HCL [Suspect]
     Indication: SPINAL FRACTURE
     Dosage: 12 MG DAILY PO
     Route: 048
     Dates: start: 20020401
  2. FLUOXETINE [Suspect]
     Dosage: 20 MG DAILY PO
     Route: 048
  3. LISINOPRIL [Concomitant]
  4. PENTOXIFYLLINE [Concomitant]
  5. HYDROXYZINE [Concomitant]
  6. MONTELUKAST [Concomitant]

REACTIONS (2)
  - SEROTONIN SYNDROME [None]
  - SPINAL FRACTURE [None]
